FAERS Safety Report 12165274 (Version 1)
Quarter: 2016Q1

REPORT INFORMATION
  Report Type: Spontaneous
  Country: US (occurrence: US)
  Receive Date: 20160309
  Receipt Date: 20160309
  Transmission Date: 20160526
  Serious: No
  Sender: FDA-Public Use
  Company Number: US-009507513-1602USA012050

PATIENT
  Age: 81 Year
  Sex: Male

DRUGS (8)
  1. TICE BCG [Suspect]
     Active Substance: BACILLUS CALMETTE-GUERIN SUBSTRAIN TICE LIVE ANTIGEN
     Dosage: DOSE 2
     Route: 030
     Dates: start: 2015, end: 2015
  2. ASPIRIN. [Concomitant]
     Active Substance: ASPIRIN
  3. TICE BCG [Suspect]
     Active Substance: BACILLUS CALMETTE-GUERIN SUBSTRAIN TICE LIVE ANTIGEN
     Indication: BLADDER CANCER
     Dosage: DOSE 1
     Route: 030
     Dates: start: 20150112, end: 20150112
  4. ASCORBIC ACID. [Concomitant]
     Active Substance: ASCORBIC ACID
  5. PRAVASTATIN [Concomitant]
     Active Substance: PRAVASTATIN\PRAVASTATIN SODIUM
  6. OMEGA-3 MARINE TRIGLYCERIDES [Concomitant]
     Active Substance: FISH OIL
  7. TRAZODONE HYDROCHLORIDE. [Concomitant]
     Active Substance: TRAZODONE HYDROCHLORIDE
  8. TICE BCG [Suspect]
     Active Substance: BACILLUS CALMETTE-GUERIN SUBSTRAIN TICE LIVE ANTIGEN
     Dosage: DOSE 3
     Route: 030
     Dates: start: 20150618, end: 20150618

REACTIONS (21)
  - Weight decreased [Unknown]
  - Urethral fistula [Unknown]
  - Escherichia infection [Unknown]
  - Nocturia [Unknown]
  - Urinary tract infection [Unknown]
  - Dehydration [Unknown]
  - Pulmonary mass [Unknown]
  - Ureteral catheterisation [Recovered/Resolved]
  - Movement disorder [Unknown]
  - Lethargy [Unknown]
  - Rash pruritic [Unknown]
  - Erythema [Unknown]
  - Haematuria [Unknown]
  - Anal fistula [Unknown]
  - Urinary incontinence [Not Recovered/Not Resolved]
  - Influenza like illness [Unknown]
  - Insomnia [Unknown]
  - Urinary incontinence [Recovered/Resolved]
  - Malaise [Unknown]
  - Diarrhoea [Unknown]
  - Adverse event [Unknown]

NARRATIVE: CASE EVENT DATE: 2015
